FAERS Safety Report 5336157-8 (Version None)
Quarter: 2007Q1

REPORT INFORMATION
  Report Type: 
  Country: None (occurrence: None)
  Receive Date: 20070302
  Receipt Date: 20061122
  Transmission Date: 20070707
  Serious: No
  Sender: FDA-Public Use
  Company Number: PHEH2006US14584

PATIENT
  Age: 81 Year
  Sex: Female
  Weight: 66.2252 kg

DRUGS (3)
  1. ENABLEX [Suspect]
     Indication: HYPERTONIC BLADDER
     Dosage: 7.5 MG, QD, ORAL
     Route: 048
     Dates: start: 20061024, end: 20061031
  2. EVISTA [Concomitant]
  3. ELMIRON [Concomitant]

REACTIONS (3)
  - CHROMATOPSIA [None]
  - VISION BLURRED [None]
  - VISUAL ACUITY REDUCED [None]
